FAERS Safety Report 4490938-1 (Version None)
Quarter: 2004Q4

REPORT INFORMATION
  Report Type: 
  Country: None (occurrence: None)
  Receive Date: 20041027
  Receipt Date: 20041025
  Transmission Date: 20050328
  Serious: Yes (Other)
  Sender: FDA-Public Use
  Company Number: 200410466BYL

PATIENT
  Age: 62 Year
  Sex: Male
  Weight: 55 kg

DRUGS (14)
  1. CIPROFLOXACIN [Suspect]
     Indication: PNEUMONIA
     Dosage: SEE IMAGE
     Route: 041
     Dates: start: 20040829, end: 20040830
  2. CIPROFLOXACIN [Suspect]
     Indication: PNEUMONIA
     Dosage: SEE IMAGE
     Route: 041
     Dates: start: 20040828
  3. CIPROFLOXACIN [Suspect]
     Indication: PNEUMONIA
     Dosage: SEE IMAGE
     Route: 041
     Dates: start: 20040831
  4. HUMULIN R [Suspect]
     Indication: DIABETES MELLITUS
     Dosage: SEE IMAGE
     Route: 041
     Dates: start: 20040823, end: 20040828
  5. HUMULIN R [Suspect]
     Indication: DIABETES MELLITUS
     Dosage: SEE IMAGE
     Route: 041
     Dates: start: 20040829
  6. HUMULIN R [Suspect]
     Indication: DIABETES MELLITUS
     Dosage: SEE IMAGE
     Route: 041
     Dates: start: 20040830
  7. ISEPACIN [Concomitant]
  8. MEROPEN [Concomitant]
  9. FUNGUARD [Concomitant]
  10. TARGOCID [Concomitant]
  11. SOLITAX-H [Concomitant]
  12. UNICALIQ [Concomitant]
  13. PENFILL R [Concomitant]
  14. PENFILL N [Concomitant]

REACTIONS (1)
  - HYPOGLYCAEMIA [None]
